FAERS Safety Report 10065582 (Version 1)
Quarter: 2014Q2

REPORT INFORMATION
  Report Type: Spontaneous
  Country: US (occurrence: US)
  Receive Date: 20140408
  Receipt Date: 20140408
  Transmission Date: 20141212
  Serious: No
  Sender: FDA-Public Use
  Company Number: US-SANOFI-AVENTIS-2013SA040419

PATIENT
  Age: 84 Year
  Sex: Male
  Weight: 77 kg

DRUGS (1)
  1. ELITEK [Suspect]
     Indication: CHRONIC LYMPHOCYTIC LEUKAEMIA
     Route: 065
     Dates: start: 20130401, end: 20130402

REACTIONS (1)
  - Blood uric acid decreased [Unknown]
